FAERS Safety Report 7063144-4 (Version None)
Quarter: 2010Q4

REPORT INFORMATION
  Report Type: 
  Country: None (occurrence: None)
  Receive Date: 20101026
  Receipt Date: 20100617
  Transmission Date: 20110411
  Serious: Yes (Disabling)
  Sender: FDA-Public Use
  Company Number: US-PFIZER INC-2010058459

PATIENT
  Sex: Male
  Weight: 90.718 kg

DRUGS (2)
  1. LIPITOR [Suspect]
     Indication: BLOOD CHOLESTEROL INCREASED
     Dosage: 40 MG, 1X/DAY
     Dates: start: 20100301, end: 20100401
  2. IBUPROFEN [Concomitant]
     Indication: BACK PAIN
     Dosage: UNK

REACTIONS (4)
  - ARTHRALGIA [None]
  - LOW DENSITY LIPOPROTEIN ABNORMAL [None]
  - MUSCLE SPASMS [None]
  - MYALGIA [None]
